FAERS Safety Report 21020399 (Version 1)
Quarter: 2022Q2

REPORT INFORMATION
  Report Type: Spontaneous
  Country: TR (occurrence: TR)
  Receive Date: 20220629
  Receipt Date: 20220629
  Transmission Date: 20220721
  Serious: Yes (Other)
  Sender: FDA-Public Use
  Company Number: TR-STRIDES ARCOLAB LIMITED-2022SP007763

PATIENT
  Age: 59 Year
  Sex: Male

DRUGS (6)
  1. TENOFOVIR DISOPROXIL FUMARATE [Suspect]
     Active Substance: TENOFOVIR DISOPROXIL FUMARATE
     Indication: Chronic hepatitis B
     Dosage: UNK
     Route: 065
     Dates: start: 2013
  2. TENOFOVIR DISOPROXIL FUMARATE [Suspect]
     Active Substance: TENOFOVIR DISOPROXIL FUMARATE
     Dosage: UNK, COMBINED WITH ENTECAVIR
     Route: 065
  3. TENOFOVIR DISOPROXIL FUMARATE [Suspect]
     Active Substance: TENOFOVIR DISOPROXIL FUMARATE
     Dosage: UNK COMBINATION THERAPY WITH ENTECAVIR
     Route: 065
  4. ENTECAVIR [Suspect]
     Active Substance: ENTECAVIR
     Indication: Chronic hepatitis B
     Dosage: 0.5 MILLIGRAM (COMBINATON WITH TENOFOVIR)
     Route: 065
  5. ENTECAVIR [Suspect]
     Active Substance: ENTECAVIR
     Dosage: 1 MILLIGRAM (MONOTHERAPY)
     Route: 065
  6. ENTECAVIR [Suspect]
     Active Substance: ENTECAVIR
     Dosage: 1 MILLIGRAM (ENTECAVIR COMBINATION THERAPY WITH TDF)
     Route: 065

REACTIONS (2)
  - Osteoporosis [Unknown]
  - Drug ineffective [Unknown]
